FAERS Safety Report 9435149 (Version 1)
Quarter: 2013Q3

REPORT INFORMATION
  Report Type: Spontaneous
  Country: US (occurrence: US)
  Receive Date: 20130801
  Receipt Date: 20130801
  Transmission Date: 20140515
  Serious: Yes (Other)
  Sender: FDA-Public Use
  Company Number: US-BAYER-2013-090946

PATIENT
  Age: 42 Year
  Sex: Female

DRUGS (4)
  1. YAZ [Suspect]
     Indication: MENORRHAGIA
  2. NEXIUM [Concomitant]
  3. ZOLOFT [Concomitant]
  4. VITAMIN D [Concomitant]

REACTIONS (2)
  - Deep vein thrombosis [None]
  - Thrombophlebitis superficial [None]
